FAERS Safety Report 13121585 (Version 1)
Quarter: 2017Q1

REPORT INFORMATION
  Report Type: Spontaneous
  Country: US (occurrence: US)
  Receive Date: 20170117
  Receipt Date: 20170117
  Transmission Date: 20170428
  Serious: No
  Sender: FDA-Public Use
  Company Number: US-GLAXOSMITHKLINE-US2017004701

PATIENT
  Age: 76 Year
  Sex: Female

DRUGS (2)
  1. FLONASE [Suspect]
     Active Substance: FLUTICASONE PROPIONATE
     Indication: NASOPHARYNGITIS
     Dosage: UNK
     Dates: start: 20170111, end: 20170111
  2. FLONASE [Suspect]
     Active Substance: FLUTICASONE PROPIONATE
     Indication: NASOPHARYNGITIS

REACTIONS (4)
  - Vomiting [Recovered/Resolved]
  - Palpitations [Recovered/Resolved]
  - Nonspecific reaction [Unknown]
  - Off label use [Unknown]

NARRATIVE: CASE EVENT DATE: 20170111
